FAERS Safety Report 4489841-2 (Version None)
Quarter: 2004Q4

REPORT INFORMATION
  Report Type: 
  Country: None (occurrence: None)
  Receive Date: 20041026
  Receipt Date: 20041014
  Transmission Date: 20050328
  Serious: Yes (Other)
  Sender: FDA-Public Use
  Company Number: 200410813BCA

PATIENT

DRUGS (1)
  1. MOXIFLOXACIN HCL [Suspect]

REACTIONS (1)
  - HEART RATE DECREASED [None]
